FAERS Safety Report 6212065-5 (Version None)
Quarter: 2009Q2

REPORT INFORMATION
  Report Type: 
  Country: None (occurrence: None)
  Receive Date: 20090602
  Receipt Date: 20090518
  Transmission Date: 20091009
  Serious: Yes (Other)
  Sender: FDA-Public Use
  Company Number: CA-PFIZER INC-2009221399

PATIENT
  Age: 25 Year

DRUGS (2)
  1. ZELDOX [Suspect]
     Dosage: UNK
  2. RISPERDAL [Concomitant]

REACTIONS (3)
  - CRYING [None]
  - MOOD ALTERED [None]
  - SUICIDAL IDEATION [None]
